FAERS Safety Report 18196469 (Version 1)
Quarter: 2020Q3

REPORT INFORMATION
  Report Type: Spontaneous
  Country: US (occurrence: US)
  Receive Date: 20200825
  Receipt Date: 20200825
  Transmission Date: 20201103
  Serious: No
  Sender: FDA-Public Use
  Company Number: None

PATIENT
  Age: 69 Year
  Sex: Male
  Weight: 78 kg

DRUGS (3)
  1. ENOXAPARIN [Concomitant]
     Active Substance: ENOXAPARIN
     Dates: start: 20200419, end: 20200424
  2. TOCILIZUMAB. [Suspect]
     Active Substance: TOCILIZUMAB
     Indication: COVID-19
     Dosage: ?          OTHER FREQUENCY:ONCE;?
     Route: 042
     Dates: start: 20200420, end: 20200420
  3. HEPARIN [Concomitant]
     Active Substance: HEPARIN SODIUM
     Dates: start: 20200420, end: 20200506

REACTIONS (6)
  - Mouth haemorrhage [None]
  - Cerebral haemorrhage [None]
  - Liver function test increased [None]
  - Melaena [None]
  - Thrombocytopenia [None]
  - Creatinine renal clearance decreased [None]

NARRATIVE: CASE EVENT DATE: 20200505
